FAERS Safety Report 16367146 (Version 1)
Quarter: 2019Q2

REPORT INFORMATION
  Report Type: Spontaneous
  Country: US (occurrence: US)
  Receive Date: 20190422
  Receipt Date: 20190422
  Transmission Date: 20190711
  Serious: Yes (Hospitalization)
  Sender: FDA-Public Use
  Company Number: None

PATIENT
  Age: 72 Year
  Sex: Male

DRUGS (2)
  1. RISPERIDONE. [Suspect]
     Active Substance: RISPERIDONE
     Indication: BIPOLAR I DISORDER
     Route: 048
     Dates: start: 20110915, end: 20190225
  2. OXYBUTYNIN. [Suspect]
     Active Substance: OXYBUTYNIN CHLORIDE
     Indication: HYPERTONIC BLADDER
     Route: 048
     Dates: start: 20150901, end: 20190225

REACTIONS (9)
  - Autonomic nervous system imbalance [None]
  - Neuropathy peripheral [None]
  - Hypothyroidism [None]
  - Parkinsonism [None]
  - Fall [None]
  - Asthenia [None]
  - Diabetes mellitus [None]
  - Arthritis [None]
  - Iron deficiency [None]

NARRATIVE: CASE EVENT DATE: 20190207
